FAERS Safety Report 9806314 (Version 2)
Quarter: 2014Q1

REPORT INFORMATION
  Report Type: Spontaneous
  Country: US (occurrence: US)
  Receive Date: 20140109
  Receipt Date: 20140109
  Transmission Date: 20141002
  Serious: Yes (Other)
  Sender: FDA-Public Use
  Company Number: US-GE HEALTHCARE MEDICAL DIAGNOSTICS-OSCN-PR-0808S-0524

PATIENT
  Age: 45 Year
  Sex: Male

DRUGS (3)
  1. OMNISCAN [Suspect]
     Indication: MENTAL STATUS CHANGES
     Dates: start: 20050728, end: 20050728
  2. OMNISCAN [Suspect]
     Indication: PRODUCT USED FOR UNKNOWN INDICATION
     Dates: start: 20050813, end: 20050813
  3. OPTIMARK [Suspect]
     Indication: PRODUCT USED FOR UNKNOWN INDICATION
     Dates: start: 20050607, end: 20050607

REACTIONS (1)
  - Nephrogenic systemic fibrosis [Not Recovered/Not Resolved]
